FAERS Safety Report 17210144 (Version 1)
Quarter: 2019Q4

REPORT INFORMATION
  Report Type: Spontaneous
  Country: US (occurrence: US)
  Receive Date: 20191227
  Receipt Date: 20191227
  Transmission Date: 20200122
  Serious: No
  Sender: FDA-Public Use
  Company Number: US-PERRIGO-19US001968

PATIENT
  Sex: Female

DRUGS (1)
  1. MIGRAINE FORMULA [Suspect]
     Active Substance: ACETAMINOPHEN\ASPIRIN\CAFFEINE
     Indication: HEADACHE
     Dosage: 4 TABLETS, SINGLE
     Route: 048
     Dates: start: 20190211, end: 20190211

REACTIONS (2)
  - Expired product administered [Recovered/Resolved]
  - Off label use [Recovered/Resolved]

NARRATIVE: CASE EVENT DATE: 20190211
